FAERS Safety Report 19134985 (Version 3)
Quarter: 2022Q1

REPORT INFORMATION
  Report Type: Spontaneous
  Country: US (occurrence: US)
  Receive Date: 20210414
  Receipt Date: 20220314
  Transmission Date: 20220423
  Serious: No
  Sender: FDA-Public Use
  Company Number: US-PFIZER INC-2020341670

PATIENT
  Age: 58 Year
  Sex: Female

DRUGS (1)
  1. XELJANZ [Suspect]
     Active Substance: TOFACITINIB CITRATE
     Indication: Rheumatoid arthritis
     Dosage: 5 MG, 2X/DAY
     Route: 048
     Dates: start: 202008

REACTIONS (13)
  - Therapeutic product effect decreased [Unknown]
  - Product dose omission issue [Unknown]
  - Nodule [Not Recovered/Not Resolved]
  - Discouragement [Unknown]
  - Anxiety [Unknown]
  - Arthralgia [Unknown]
  - Inflammation [Unknown]
  - Burning sensation [Unknown]
  - Bursitis [Unknown]
  - Throat irritation [Unknown]
  - Foot deformity [Not Recovered/Not Resolved]
  - Condition aggravated [Unknown]
  - Pain [Unknown]
